FAERS Safety Report 4338521-2 (Version None)
Quarter: 2004Q2

REPORT INFORMATION
  Report Type: 
  Country: None (occurrence: None)
  Receive Date: 20040414
  Receipt Date: 20030731
  Transmission Date: 20050107
  Serious: Yes (Other)
  Sender: FDA-Public Use
  Company Number: DE-GLAXOSMITHKLINE-D0041635A

PATIENT
  Age: 32 Year
  Sex: Female

DRUGS (5)
  1. SULTANOL [Suspect]
     Indication: ASTHMA
     Route: 055
  2. THEOPHYLLINE [Concomitant]
     Indication: ASTHMA
     Route: 065
  3. PREDNISOLONE [Concomitant]
     Route: 065
  4. CORTICOSTEROIDS [Concomitant]
     Indication: ASTHMA
     Route: 055
  5. NEUROLEPTIC MEDICATION [Concomitant]
     Route: 065

REACTIONS (9)
  - BLOOD CORTISOL INCREASED [None]
  - CAESAREAN SECTION [None]
  - COMPLICATIONS OF MATERNAL EXPOSURE TO THERAPEUTIC DRUGS [None]
  - GESTATIONAL DIABETES [None]
  - HEPATITIS C [None]
  - POLYCYSTIC OVARIES [None]
  - PREGNANCY [None]
  - PREMATURE BABY [None]
  - PSYCHOTIC DISORDER [None]
